FAERS Safety Report 6768164-2 (Version None)
Quarter: 2010Q2

REPORT INFORMATION
  Report Type: 
  Country: None (occurrence: None)
  Receive Date: 20100610
  Receipt Date: 20100601
  Transmission Date: 20101027
  Serious: Yes (Other)
  Sender: FDA-Public Use
  Company Number: 549676

PATIENT
  Sex: Female

DRUGS (2)
  1. CARBOPLATIN [Suspect]
     Indication: OVARIAN CANCER
     Dosage: 560 MG MILLIGRAM(S), 1 HOUR, INTRAVENOUS
     Route: 042
     Dates: start: 20070801, end: 20080103
  2. TAXOL [Suspect]
     Indication: CHEMOTHERAPY
     Dosage: INTRAVENOUS
     Route: 042
     Dates: start: 20070801, end: 20080103

REACTIONS (11)
  - BONE PAIN [None]
  - CONSTIPATION [None]
  - DISTURBANCE IN ATTENTION [None]
  - DIZZINESS [None]
  - DYSKINESIA [None]
  - FATIGUE [None]
  - HAEMATEMESIS [None]
  - HAEMATOCHEZIA [None]
  - HEARING IMPAIRED [None]
  - MEMORY IMPAIRMENT [None]
  - MYALGIA [None]
